FAERS Safety Report 14708350 (Version 1)
Quarter: 2018Q2

REPORT INFORMATION
  Report Type: Report from Study
  Country: JP (occurrence: JP)
  Receive Date: 20180403
  Receipt Date: 20180403
  Transmission Date: 20180711
  Serious: Yes (Life-Threatening, Other)
  Sender: FDA-Public Use
  Company Number: JP-CLINIGEN GROUP PLC/ CLINIGEN HEALTHCARE LTD-JP-CLGN-18-00060

PATIENT
  Age: 60 Year
  Sex: Female
  Weight: 56.7 kg

DRUGS (31)
  1. RINGERS SOLUTION [Concomitant]
     Active Substance: CALCIUM CHLORIDE\POTASSIUM CHLORIDE\SODIUM CHLORIDE
     Indication: MEDICATION DILUTION
     Route: 041
     Dates: start: 20150817, end: 20150819
  2. GRANISETRON [Concomitant]
     Active Substance: GRANISETRON
     Route: 041
     Dates: start: 20150903, end: 20150907
  3. PREDONINE [Suspect]
     Active Substance: PREDNISOLONE
     Dates: start: 20150903, end: 20150907
  4. DERMOVATE [Concomitant]
     Active Substance: CLOBETASOL
     Indication: INFUSION SITE EXTRAVASATION
     Route: 003
     Dates: start: 20150817, end: 20150905
  5. VITAMEDIN [Concomitant]
     Active Substance: CYANOCOBALAMIN\PYRIDOXINE HYDROCHLORIDE\THIAMINE
     Indication: PRODUCT USED FOR UNKNOWN INDICATION
     Route: 042
     Dates: start: 20150815, end: 20150831
  6. GRAN [Concomitant]
     Active Substance: FILGRASTIM
     Indication: PRODUCT USED FOR UNKNOWN INDICATION
     Dates: start: 20150822, end: 20150828
  7. NEUART [Concomitant]
     Active Substance: ANTITHROMBIN III HUMAN
     Route: 042
     Dates: start: 20150825, end: 20150825
  8. TAKEPRON [Concomitant]
     Active Substance: LANSOPRAZOLE
     Indication: PRODUCT USED FOR UNKNOWN INDICATION
     Route: 048
     Dates: start: 20150812, end: 20150820
  9. DIPRIVAN [Concomitant]
     Active Substance: PROPOFOL
     Indication: PRODUCT USED FOR UNKNOWN INDICATION
     Route: 042
     Dates: start: 20150811, end: 20150916
  10. PANTOL [Concomitant]
     Active Substance: DEXPANTHENOL
     Indication: PRODUCT USED FOR UNKNOWN INDICATION
     Dates: start: 20150818, end: 20150827
  11. PRECEDEX [Concomitant]
     Active Substance: DEXMEDETOMIDINE HYDROCHLORIDE
     Indication: PRODUCT USED FOR UNKNOWN INDICATION
     Route: 042
     Dates: start: 20150812, end: 20150916
  12. ETOPOSIDE. [Concomitant]
     Active Substance: ETOPOSIDE
     Indication: PRODUCT USED FOR UNKNOWN INDICATION
     Route: 041
     Dates: start: 20150903, end: 20150906
  13. GRANISETRON [Concomitant]
     Active Substance: GRANISETRON
     Indication: PROPHYLAXIS OF NAUSEA AND VOMITING
     Route: 041
     Dates: start: 20150817, end: 20150817
  14. SAVENE [Suspect]
     Active Substance: DEXRAZOXANE
     Indication: INFUSION SITE EXTRAVASATION
     Route: 041
     Dates: start: 20150817, end: 20150818
  15. SAVENE [Suspect]
     Active Substance: DEXRAZOXANE
     Route: 041
     Dates: start: 20150819, end: 20150819
  16. DOXORUBICIN HYDROCHLORIDE. [Suspect]
     Active Substance: DOXORUBICIN HYDROCHLORIDE
     Indication: LYMPHOMA
     Route: 042
     Dates: start: 20150817, end: 20150817
  17. PREDONINE [Suspect]
     Active Substance: PREDNISOLONE
     Indication: LYMPHOMA
     Dates: start: 20150814, end: 20150818
  18. RINDERON V [Concomitant]
     Active Substance: BETAMETHASONE VALERATE
     Indication: INFUSION SITE EXTRAVASATION
     Route: 058
     Dates: start: 20150817, end: 20150817
  19. PRIMPERAN [Concomitant]
     Active Substance: METOCLOPRAMIDE HYDROCHLORIDE
     Indication: PRODUCT USED FOR UNKNOWN INDICATION
     Dates: start: 20150818, end: 20150827
  20. RITUXAN [Concomitant]
     Active Substance: RITUXIMAB
     Indication: PRODUCT USED FOR UNKNOWN INDICATION
     Route: 041
     Dates: start: 20150827, end: 20150827
  21. NEUART [Concomitant]
     Active Substance: ANTITHROMBIN III HUMAN
     Indication: PRODUCT USED FOR UNKNOWN INDICATION
     Route: 042
     Dates: start: 20150823, end: 20150823
  22. GRAN [Concomitant]
     Active Substance: FILGRASTIM
     Dates: start: 20150909, end: 20150916
  23. FUNGUARD [Concomitant]
     Active Substance: MICAFUNGIN SODIUM
     Indication: PRODUCT USED FOR UNKNOWN INDICATION
     Route: 041
     Dates: start: 20150909, end: 20151005
  24. DOXORUBICIN HYDROCHLORIDE. [Suspect]
     Active Substance: DOXORUBICIN HYDROCHLORIDE
     Route: 042
     Dates: start: 20150903, end: 20150906
  25. FENTANYL. [Concomitant]
     Active Substance: FENTANYL
     Indication: PRODUCT USED FOR UNKNOWN INDICATION
     Dates: start: 20150812, end: 20150915
  26. HUMULIN R [Concomitant]
     Active Substance: INSULIN HUMAN
     Indication: PRODUCT USED FOR UNKNOWN INDICATION
     Route: 058
     Dates: start: 20150821, end: 20151001
  27. ONCOVIN [Suspect]
     Active Substance: VINCRISTINE SULFATE
     Route: 042
     Dates: start: 20150903, end: 20150906
  28. RITUXAN [Concomitant]
     Active Substance: RITUXIMAB
     Route: 041
     Dates: start: 20150908, end: 20150908
  29. ENDOXAN [Suspect]
     Active Substance: CYCLOPHOSPHAMIDE
     Indication: LYMPHOMA
     Route: 042
     Dates: start: 20150817, end: 20150817
  30. ONCOVIN [Suspect]
     Active Substance: VINCRISTINE SULFATE
     Indication: LYMPHOMA
     Route: 042
     Dates: start: 20150817, end: 20150817
  31. SERENACE [Concomitant]
     Active Substance: HALOPERIDOL
     Indication: PRODUCT USED FOR UNKNOWN INDICATION
     Dates: start: 20150904, end: 20150924

REACTIONS (3)
  - Bone marrow failure [Recovered/Resolved]
  - Hypokalaemia [Recovered/Resolved]
  - Febrile neutropenia [Recovered/Resolved]

NARRATIVE: CASE EVENT DATE: 20150819
